FAERS Safety Report 16886601 (Version 1)
Quarter: 2019Q4

REPORT INFORMATION
  Report Type: Spontaneous
  Country: US (occurrence: US)
  Receive Date: 20191004
  Receipt Date: 20191004
  Transmission Date: 20200122
  Serious: Yes (Other)
  Sender: FDA-Public Use
  Company Number: None

PATIENT
  Age: 21 Year
  Sex: Male
  Weight: 70.31 kg

DRUGS (2)
  1. PARAGARD T 380A [Suspect]
     Active Substance: COPPER
     Dates: start: 20160501
  2. PARAGARD T 380A [Suspect]
     Active Substance: COPPER
     Dates: start: 20160501, end: 20191004

REACTIONS (5)
  - Coital bleeding [None]
  - Device expulsion [None]
  - Device breakage [None]
  - Complication of device removal [None]
  - Dysmenorrhoea [None]

NARRATIVE: CASE EVENT DATE: 20191004
